FAERS Safety Report 4922294-6 (Version None)
Quarter: 2006Q1

REPORT INFORMATION
  Report Type: 
  Country: None (occurrence: None)
  Receive Date: 20060224
  Receipt Date: 20050912
  Transmission Date: 20060701
  Serious: Yes (Hospitalization, Disabling, Other)
  Sender: FDA-Public Use
  Company Number: US-MERCK-0509USA01655

PATIENT
  Age: 57 Year
  Sex: Female
  Weight: 98 kg

DRUGS (14)
  1. VIOXX [Suspect]
     Indication: ARTHRALGIA
     Route: 048
     Dates: start: 20010101, end: 20040901
  2. VIOXX [Suspect]
     Indication: OSTEOARTHRITIS
     Route: 048
     Dates: start: 20010101, end: 20040901
  3. AMOXICILLIN [Concomitant]
     Indication: INFECTION
     Route: 065
  4. CEPHALEXIN [Concomitant]
     Indication: INFECTION
     Route: 065
  5. FOSAMAX [Concomitant]
     Indication: OSTEOPOROSIS PROPHYLAXIS
     Route: 065
  6. FLUOCINOLONE ACETONIDE [Concomitant]
     Indication: SKIN DISORDER
     Route: 065
  7. METOPROLOL [Concomitant]
     Indication: HYPERTENSION
     Route: 065
  8. NORVASC [Concomitant]
     Indication: HYPERTENSION
     Route: 065
     Dates: start: 19900101
  9. POTASSIUM CHLORIDE [Concomitant]
     Indication: BLOOD POTASSIUM DECREASED
     Route: 065
  10. PREMARIN [Concomitant]
     Indication: HORMONE REPLACEMENT THERAPY
     Route: 065
     Dates: start: 19950101, end: 20030901
  11. SMZ-TMP [Concomitant]
     Indication: INFECTION
     Route: 065
  12. ZYRTEC [Concomitant]
     Indication: DRUG HYPERSENSITIVITY
     Route: 065
  13. TYLENOL (CAPLET) [Concomitant]
     Route: 065
     Dates: start: 20020401
  14. LOTREL [Concomitant]
     Route: 065

REACTIONS (12)
  - ANGINA PECTORIS [None]
  - BLOOD CHOLESTEROL INCREASED [None]
  - BLOOD PRESSURE INCREASED [None]
  - CARDIAC DISORDER [None]
  - CEREBROVASCULAR ACCIDENT [None]
  - CORONARY ARTERY DISEASE [None]
  - CORONARY ARTERY DISSECTION [None]
  - DYSPNOEA EXERTIONAL [None]
  - MYOCARDIAL INFARCTION [None]
  - OEDEMA PERIPHERAL [None]
  - PLATELET AGGREGATION INCREASED [None]
  - THROMBOSIS [None]
